FAERS Safety Report 5936750-5 (Version None)
Quarter: 2008Q4

REPORT INFORMATION
  Report Type: 
  Country: None (occurrence: None)
  Receive Date: 20081027
  Receipt Date: 20081013
  Transmission Date: 20090506
  Serious: No
  Sender: FDA-Public Use
  Company Number: WSDF_00758

PATIENT
  Age: 55 Year
  Sex: Female
  Weight: 112.7 kg

DRUGS (1)
  1. WINRHO [Suspect]
     Indication: IDIOPATHIC THROMBOCYTOPENIC PURPURA
     Dosage: 73.6 UG/KG ONCE IV
     Route: 042
     Dates: start: 20081007, end: 20081007

REACTIONS (4)
  - ARTHRALGIA [None]
  - BACK PAIN [None]
  - CHILLS [None]
  - PYREXIA [None]
